FAERS Safety Report 18595096 (Version 1)
Quarter: 2020Q4

REPORT INFORMATION
  Report Type: Spontaneous
  Country: US (occurrence: US)
  Receive Date: 20201209
  Receipt Date: 20201209
  Transmission Date: 20210114
  Serious: No
  Sender: FDA-Public Use
  Company Number: US-UCBSA-2020042470

PATIENT
  Age: 35 Year
  Sex: Female

DRUGS (1)
  1. NAYZILAM [Suspect]
     Active Substance: MIDAZOLAM
     Indication: SEIZURE CLUSTER
     Dosage: UNK

REACTIONS (1)
  - Unevaluable event [Unknown]
